FAERS Safety Report 5428306-8 (Version None)
Quarter: 2007Q3

REPORT INFORMATION
  Report Type: 
  Country: None (occurrence: None)
  Receive Date: 20070823
  Receipt Date: 20070813
  Transmission Date: 20080115
  Serious: Yes (Other)
  Sender: FDA-Public Use
  Company Number: 070720-0000698

PATIENT
  Sex: Female

DRUGS (2)
  1. DACTINOMYCIN [Suspect]
     Indication: NEPHROBLASTOMA
     Dosage: 15 UG/KG;
  2. THERAPY UNSPECIFIED (NO PREF. NAME) [Suspect]
     Indication: NEPHROBLASTOMA

REACTIONS (2)
  - RENAL FAILURE [None]
  - RENAL TRANSPLANT [None]
